FAERS Safety Report 4733667-9 (Version None)
Quarter: 2005Q3

REPORT INFORMATION
  Report Type: 
  Country: None (occurrence: None)
  Receive Date: 20050729
  Receipt Date: 20050713
  Transmission Date: 20060218
  Serious: Yes (Other)
  Sender: FDA-Public Use
  Company Number: GBS050617551

PATIENT
  Age: 11 Year
  Sex: Female
  Weight: 36 kg

DRUGS (1)
  1. STRATTERA [Suspect]
     Indication: ATTENTION DEFICIT/HYPERACTIVITY DISORDER
     Dosage: 25 MG DAY
     Dates: start: 20041119, end: 20050404

REACTIONS (6)
  - APATHY [None]
  - ASTHENIA [None]
  - CHILLS [None]
  - DEPRESSION [None]
  - FEELING COLD [None]
  - FLAT AFFECT [None]
